FAERS Safety Report 24416513 (Version 1)
Quarter: 2024Q4

REPORT INFORMATION
  Report Type: Spontaneous
  Country: CN (occurrence: CN)
  Receive Date: 20241009
  Receipt Date: 20241009
  Transmission Date: 20250114
  Serious: Yes (Other)
  Sender: NOVARTIS
  Company Number: CN-002147023-NVSC2024CN196717

PATIENT
  Age: 67 Year
  Sex: Male
  Weight: 72 kg

DRUGS (1)
  1. CARBAMAZEPINE [Suspect]
     Active Substance: CARBAMAZEPINE
     Indication: Epilepsy
     Dosage: 200.000 MG, QD
     Route: 048
     Dates: start: 20240912, end: 20240916

REACTIONS (22)
  - Myelosuppression [Recovering/Resolving]
  - Rash [Recovering/Resolving]
  - Hyperpyrexia [Recovering/Resolving]
  - Laryngeal pain [Recovering/Resolving]
  - Decreased appetite [Recovering/Resolving]
  - Asthenia [Recovering/Resolving]
  - Nausea [Recovering/Resolving]
  - Haematemesis [Recovering/Resolving]
  - Haematochezia [Recovering/Resolving]
  - Vomiting [Recovering/Resolving]
  - Diarrhoea [Recovering/Resolving]
  - Skin wound [Recovering/Resolving]
  - Pigmentation disorder [Recovering/Resolving]
  - Abdominal distension [Recovering/Resolving]
  - Blood pressure systolic increased [Unknown]
  - Scab [Unknown]
  - Oral pain [Recovering/Resolving]
  - Lip pain [Recovering/Resolving]
  - Abdominal pain [Recovering/Resolving]
  - Heart rate increased [Recovering/Resolving]
  - Procalcitonin increased [Unknown]
  - C-reactive protein increased [Unknown]

NARRATIVE: CASE EVENT DATE: 20240916
